FAERS Safety Report 7459887-0 (Version None)
Quarter: 2011Q2

REPORT INFORMATION
  Report Type: 
  Country: None (occurrence: None)
  Receive Date: 20110505
  Receipt Date: 20110112
  Transmission Date: 20111010
  Serious: Yes (Hospitalization, Other)
  Sender: FDA-Public Use
  Company Number: US-BAYER-201037086NA

PATIENT
  Age: 46 Year
  Sex: Female
  Weight: 70.295 kg

DRUGS (7)
  1. OXYCODONE [Concomitant]
  2. CIPROFLOXACIN [Concomitant]
  3. OCELLA [Suspect]
     Dosage: UNK
     Route: 048
  4. DOXEPIN [Concomitant]
  5. VALTREX [Concomitant]
     Indication: ORAL HERPES
     Dosage: UNK
     Dates: start: 20040601
  6. YAZ [Suspect]
     Indication: PRODUCT USED FOR UNKNOWN INDICATION
     Dosage: UNK
     Route: 048
     Dates: start: 20060809, end: 20091209
  7. YASMIN [Suspect]
     Dosage: UNK
     Route: 048

REACTIONS (7)
  - GALLBLADDER INJURY [None]
  - BILIARY COLIC [None]
  - PAIN [None]
  - EMOTIONAL DISTRESS [None]
  - CHOLECYSTITIS CHRONIC [None]
  - CHOLELITHIASIS [None]
  - SCAR [None]
